FAERS Safety Report 6304095-X (Version None)
Quarter: 2009Q3

REPORT INFORMATION
  Report Type: 
  Country: None (occurrence: None)
  Receive Date: 20090806
  Receipt Date: 20090728
  Transmission Date: 20100115
  Serious: Yes (Other)
  Sender: FDA-Public Use
  Company Number: SPV1-2009-01561

PATIENT
  Age: 5 Year
  Sex: Male

DRUGS (7)
  1. DAYTRANA [Suspect]
     Indication: ATTENTION DEFICIT/HYPERACTIVITY DISORDER
     Dosage: 15 MG, 1 X/DAY:QD, TRANSDERMAL
     Route: 062
     Dates: start: 20080122, end: 20090201
  2. DAYTRANA [Suspect]
     Indication: ATTENTION DEFICIT/HYPERACTIVITY DISORDER
     Dosage: 15 MG, 1 X/DAY:QD, TRANSDERMAL
     Route: 062
     Dates: start: 20090401
  3. METHYLINE TABLET [Concomitant]
  4. GUANFACINE (GUANFACINE) TABLET [Concomitant]
  5. FOLATE (FOLIC ACID) [Concomitant]
  6. QVAR (BECLOMETASONE DIPROPIONATE) INHALATION GAS [Concomitant]
  7. CYPROHEPTADINE HCL [Concomitant]

REACTIONS (2)
  - BONE MARROW FAILURE [None]
  - OFF LABEL USE [None]
